FAERS Safety Report 13914176 (Version 1)
Quarter: 2017Q3

REPORT INFORMATION
  Report Type: Spontaneous
  Country: US (occurrence: US)
  Receive Date: 20170828
  Receipt Date: 20170828
  Transmission Date: 20171127
  Serious: No
  Sender: FDA-Public Use
  Company Number: US-ROCHE-1141024

PATIENT
  Sex: Male
  Weight: 73.09 kg

DRUGS (13)
  1. NUTROPIN AQ [Suspect]
     Active Substance: SOMATROPIN
     Indication: HYPOPITUITARISM
     Dosage: 0.10 CC
     Route: 065
  2. PROZAC [Concomitant]
     Active Substance: FLUOXETINE HYDROCHLORIDE
     Route: 065
  3. PROZAC [Concomitant]
     Active Substance: FLUOXETINE HYDROCHLORIDE
  4. L DOPA [Concomitant]
     Active Substance: LEVODOPA
  5. NUTROPIN AQ [Suspect]
     Active Substance: SOMATROPIN
     Route: 065
     Dates: end: 1991
  6. NUTROPIN AQ [Suspect]
     Active Substance: SOMATROPIN
     Indication: GROWTH HORMONE DEFICIENCY
     Route: 065
     Dates: start: 1987
  7. PROPECIA [Concomitant]
     Active Substance: FINASTERIDE
  8. REMERON [Concomitant]
     Active Substance: MIRTAZAPINE
  9. KLONOPIN [Concomitant]
     Active Substance: CLONAZEPAM
     Route: 065
  10. PROPRANOLOL [Concomitant]
     Active Substance: PROPRANOLOL HYDROCHLORIDE
  11. BROMPHED [Concomitant]
     Dosage: 1 TABLET
     Route: 065
  12. NUTROPIN AQ [Suspect]
     Active Substance: SOMATROPIN
     Route: 058
  13. XANAX [Concomitant]
     Active Substance: ALPRAZOLAM
     Route: 065

REACTIONS (8)
  - Sleep disorder [Unknown]
  - Central obesity [Unknown]
  - Somnolence [Unknown]
  - Lethargy [Unknown]
  - Depression [Unknown]
  - Malaise [Unknown]
  - Muscle atrophy [Unknown]
  - Irritability [Unknown]
